FAERS Safety Report 6910147-3 (Version None)
Quarter: 2010Q3

REPORT INFORMATION
  Report Type: 
  Country: None (occurrence: None)
  Receive Date: 20100806
  Receipt Date: 20100726
  Transmission Date: 20110219
  Serious: No
  Sender: FDA-Public Use
  Company Number: MX-ELI_LILLY_AND_COMPANY-MX201007002083

PATIENT
  Age: 55 Year
  Sex: Female
  Weight: 68 kg

DRUGS (5)
  1. BYETTA [Suspect]
     Indication: DIABETES MELLITUS
     Dosage: 5 UG, 2/D
     Route: 058
     Dates: start: 20100617, end: 20100625
  2. BI-EUGLUCON /01182201/ [Concomitant]
     Dosage: UNK, UNKNOWN
     Route: 065
  3. LIPITOR [Concomitant]
     Dosage: UNK, UNKNOWN
     Route: 065
  4. LEVOTHYROXINE [Concomitant]
     Dosage: UNK, UNKNOWN
     Route: 065
  5. BEZAFIBRATE [Concomitant]
     Dosage: UNK, UNKNOWN
     Route: 065

REACTIONS (6)
  - BLOOD TRIGLYCERIDES INCREASED [None]
  - FOREIGN BODY SENSATION IN EYES [None]
  - HYPERCHOLESTEROLAEMIA [None]
  - OFF LABEL USE [None]
  - PHOTOPHOBIA [None]
  - VISION BLURRED [None]
